FAERS Safety Report 11881346 (Version 1)
Quarter: 2015Q4

REPORT INFORMATION
  Report Type: Spontaneous
  Country: US (occurrence: US)
  Receive Date: 20151231
  Receipt Date: 20151231
  Transmission Date: 20160305
  Serious: No
  Sender: FDA-Public Use
  Company Number: US-CELGENEUS-USA-2015126253

PATIENT
  Age: 64 Year
  Sex: Female
  Weight: 79.45 kg

DRUGS (5)
  1. CERA VE [Concomitant]
     Indication: PRODUCT USED FOR UNKNOWN INDICATION
     Route: 065
  2. CLOBETASOL [Concomitant]
     Active Substance: CLOBETASOL
     Indication: PRODUCT USED FOR UNKNOWN INDICATION
     Route: 065
  3. OTEZLA [Suspect]
     Active Substance: APREMILAST
     Indication: PSORIASIS
     Route: 048
  4. OTEZLA [Suspect]
     Active Substance: APREMILAST
     Route: 048
  5. VITAMINS [Concomitant]
     Active Substance: VITAMINS
     Indication: PRODUCT USED FOR UNKNOWN INDICATION
     Route: 065

REACTIONS (6)
  - Crying [Not Recovered/Not Resolved]
  - Constipation [Not Recovered/Not Resolved]
  - Depressed mood [Not Recovered/Not Resolved]
  - Nausea [Recovering/Resolving]
  - Nasopharyngitis [Not Recovered/Not Resolved]
  - Vomiting [Recovering/Resolving]

NARRATIVE: CASE EVENT DATE: 201512
